FAERS Safety Report 9716274 (Version 1)
Quarter: 2013Q4

REPORT INFORMATION
  Report Type: Spontaneous
  Country: US (occurrence: US)
  Receive Date: 20131127
  Receipt Date: 20131127
  Transmission Date: 20140711
  Serious: No
  Sender: FDA-Public Use
  Company Number: US-ENDO PHARMACEUTICALS INC.-HCDA20120103

PATIENT
  Sex: Female
  Weight: 61.29 kg

DRUGS (2)
  1. HYDROCODONE/ACETAMINOPHEN [Suspect]
     Indication: RHEUMATOID ARTHRITIS
     Dosage: 40/2600 MG
     Route: 048
  2. HYDROCODONE/ACETAMINOPHEN [Suspect]
     Indication: PAIN

REACTIONS (2)
  - Foreign body [Not Recovered/Not Resolved]
  - Drug ineffective [Not Recovered/Not Resolved]
